FAERS Safety Report 10914865 (Version 2)
Quarter: 2015Q2

REPORT INFORMATION
  Report Type: Report from Study
  Country: US (occurrence: US)
  Receive Date: 20150314
  Receipt Date: 20150403
  Transmission Date: 20150821
  Serious: Yes (Other)
  Sender: FDA-Public Use
  Company Number: US-BIOGENIDEC-2015BI031363

PATIENT
  Age: 58 Year
  Sex: Female

DRUGS (11)
  1. TECFIDERA [Concomitant]
     Active Substance: DIMETHYL FUMARATE
  2. GABAPENTIN. [Concomitant]
     Active Substance: GABAPENTIN
  3. VALIUM [Concomitant]
     Active Substance: DIAZEPAM
  4. NAPROXEN. [Concomitant]
     Active Substance: NAPROXEN
  5. TRAZODONE [Concomitant]
     Active Substance: TRAZODONE HYDROCHLORIDE
  6. TYSABRI [Suspect]
     Active Substance: NATALIZUMAB
     Indication: MULTIPLE SCLEROSIS
     Route: 042
     Dates: start: 20061204, end: 20120406
  7. TYSABRI [Suspect]
     Active Substance: NATALIZUMAB
     Indication: MULTIPLE SCLEROSIS
     Route: 042
     Dates: start: 20140602, end: 20141204
  8. PAXIL [Concomitant]
     Active Substance: PAROXETINE HYDROCHLORIDE
  9. DILANTIN [Concomitant]
     Active Substance: PHENYTOIN
  10. METHADONE [Concomitant]
     Active Substance: METHADONE HYDROCHLORIDE
     Indication: HEADACHE
  11. ZOFRAN [Concomitant]
     Active Substance: ONDANSETRON HYDROCHLORIDE

REACTIONS (1)
  - No adverse event [Unknown]
